FAERS Safety Report 25654542 (Version 1)
Quarter: 2025Q3

REPORT INFORMATION
  Report Type: Spontaneous
  Country: US (occurrence: None)
  Receive Date: 20250806
  Receipt Date: 20250806
  Transmission Date: 20251020
  Serious: Yes (Death)
  Sender: FDA-CTU
  Company Number: None

PATIENT
  Age: 64 Year
  Sex: Male
  Weight: 24.95 kg

DRUGS (12)
  1. PIFELTRO [Suspect]
     Active Substance: DORAVIRINE
     Indication: HIV infection
     Dosage: 100 MG DAILY ORAL
     Route: 048
     Dates: start: 20231219, end: 20250703
  2. RUKOBIA [Suspect]
     Active Substance: FOSTEMSAVIR TROMETHAMINE
     Indication: HIV infection
     Dosage: 600 MG BID ORAL ?
     Route: 048
     Dates: start: 20220922, end: 20250703
  3. ATORVASTATIN [Concomitant]
     Active Substance: ATORVASTATIN
  4. LEVOTHYROXINE [Concomitant]
     Active Substance: LEVOTHYROXINE
  5. LISINOPRIL [Concomitant]
     Active Substance: LISINOPRIL
  6. MIRTAZAPINE [Concomitant]
     Active Substance: MIRTAZAPINE
  7. TRELEGY ELLI PTA 100 [Concomitant]
  8. MELATONIN [Concomitant]
     Active Substance: MELATONIN
  9. VITAMIN D [Concomitant]
     Active Substance: VITAMIN D NOS
  10. DARUNAVIR [Concomitant]
     Active Substance: DARUNAVIR
  11. GABAPENTIN [Concomitant]
     Active Substance: GABAPENTIN
  12. RITONAVIR [Concomitant]
     Active Substance: RITONAVIR

REACTIONS (1)
  - Death [None]

NARRATIVE: CASE EVENT DATE: 20250703
